FAERS Safety Report 7440040-1 (Version None)
Quarter: 2011Q2

REPORT INFORMATION
  Report Type: 
  Country: None (occurrence: None)
  Receive Date: 20110427
  Receipt Date: 20101209
  Transmission Date: 20111010
  Serious: Yes (Hospitalization, Other)
  Sender: FDA-Public Use
  Company Number: US-BAYER-201026513NA

PATIENT
  Age: 24 Year
  Sex: Female
  Weight: 110.91 kg

DRUGS (13)
  1. DEPO-PROVERA [Concomitant]
     Dates: start: 20080601
  2. NAPROXEN [Concomitant]
     Indication: HEADACHE
     Dosage: 1000 MG (DAILY DOSE), BID, ORAL
     Route: 048
     Dates: start: 20080101
  3. LYRICA [Concomitant]
     Dosage: 300 MG (DAILY DOSE), BID, ORAL
     Route: 048
     Dates: start: 20080926
  4. AMBIEN [Concomitant]
     Dosage: 10 MG (DAILY DOSE), HS, ORAL
     Route: 048
     Dates: start: 20080101
  5. IUD NOS [Concomitant]
     Route: 015
     Dates: start: 20060101
  6. ADVIL LIQUI-GELS [Concomitant]
     Indication: HEADACHE
     Dates: start: 20080101
  7. ASMANEX TWISTHALER [Concomitant]
     Route: 048
     Dates: start: 20080901
  8. YAZ [Suspect]
     Indication: CONTRACEPTION
     Route: 048
     Dates: start: 20080701, end: 20080801
  9. PROTRIPTYLINE [Concomitant]
     Indication: HEADACHE
     Dates: start: 20080818
  10. NADOL [Concomitant]
     Indication: HEADACHE
     Dates: start: 20080818
  11. ORAL CONTRACEPTIVE NOS [Concomitant]
     Dates: start: 19950101, end: 20080601
  12. LYRICA [Concomitant]
     Indication: FIBROMYALGIA
     Dosage: 150 MG (DAILY DOSE), BID, ORAL
     Route: 048
     Dates: start: 20080919, end: 20080925
  13. LOVENOX [Concomitant]
     Indication: PULMONARY EMBOLISM
     Dates: start: 20080820

REACTIONS (9)
  - CHEST DISCOMFORT [None]
  - PULMONARY EMBOLISM [None]
  - BACK PAIN [None]
  - DYSPNOEA [None]
  - ASTHMA [None]
  - PULMONARY MYCOSIS [None]
  - HYPOAESTHESIA [None]
  - PLEURITIC PAIN [None]
  - BRAIN OEDEMA [None]
